FAERS Safety Report 7778512-2 (Version None)
Quarter: 2011Q3

REPORT INFORMATION
  Report Type: 
  Country: None (occurrence: None)
  Receive Date: 20110926
  Receipt Date: 20110913
  Transmission Date: 20111222
  Serious: Yes (Other)
  Sender: FDA-Public Use
  Company Number: US-BAYER-2011-085494

PATIENT
  Age: 29 Year
  Sex: Male

DRUGS (1)
  1. CIPROFLOXACIN [Suspect]
     Indication: SINUSITIS
     Dosage: UNK

REACTIONS (5)
  - HEAD TITUBATION [None]
  - TREMOR [None]
  - PAIN IN EXTREMITY [None]
  - INSOMNIA [None]
  - ABDOMINAL PAIN UPPER [None]
